FAERS Safety Report 25897238 (Version 1)
Quarter: 2025Q4

REPORT INFORMATION
  Report Type: Spontaneous
  Country: IN (occurrence: IN)
  Receive Date: 20251008
  Receipt Date: 20251008
  Transmission Date: 20260117
  Serious: Yes (Other)
  Sender: NOVARTIS
  Company Number: IN-002147023-NVSC2025IN152039

PATIENT
  Age: 77 Year
  Sex: Female

DRUGS (1)
  1. BROLUCIZUMAB [Suspect]
     Active Substance: BROLUCIZUMAB
     Indication: Age-related macular degeneration
     Dosage: UNK (MONTHLY/QUARTERLY)
     Route: 031
     Dates: start: 20250908, end: 20250926

REACTIONS (4)
  - Vitritis [Unknown]
  - Anterior chamber disorder [Unknown]
  - Hypopyon [Unknown]
  - Injection site pain [Unknown]

NARRATIVE: CASE EVENT DATE: 20250926
